FAERS Safety Report 4726834-1 (Version None)
Quarter: 2005Q3

REPORT INFORMATION
  Report Type: 
  Country: None (occurrence: None)
  Receive Date: 20050726
  Receipt Date: 20050708
  Transmission Date: 20060218
  Serious: Yes (Death)
  Sender: FDA-Public Use
  Company Number: MAG-2005-0000379

PATIENT
  Age: 79 Year
  Sex: Male

DRUGS (18)
  1. OXYCODONE HCL [Suspect]
     Indication: CANCER PAIN
     Dosage: 40 + 30 + 60 MG, DAILY, ORAL
     Route: 048
     Dates: start: 20050210, end: 20050215
  2. OXYCODONE HCL [Suspect]
     Indication: CANCER PAIN
     Dosage: 40 + 30 + 60 MG, DAILY, ORAL
     Route: 048
     Dates: start: 20050215, end: 20050621
  3. OXYCODONE HCL [Suspect]
     Indication: CANCER PAIN
     Dosage: 40 + 30 + 60 MG, DAILY, ORAL
     Route: 048
     Dates: start: 20050621, end: 20050703
  4. OXYCODONE HCL [Suspect]
     Indication: CANCER PAIN
     Dosage: 5 + 10 MG, QD, PRN, ORAL
     Route: 048
     Dates: start: 20050210, end: 20050308
  5. OXYCODONE HCL [Suspect]
     Indication: CANCER PAIN
     Dosage: 5 + 10 MG, QD, PRN, ORAL
     Route: 048
     Dates: start: 20050308, end: 20050705
  6. PURSENNID (SENNA LEAF) [Concomitant]
  7. LOXONIN (LOXOPROFEN SODIUM) [Concomitant]
  8. MAGNESIUM OXIDE (MAGNESIUM OXIDE) [Concomitant]
  9. HALOPERIDOL [Concomitant]
  10. ASPIRIN [Concomitant]
  11. BLOPRESS (CANDESARTAN CILEXETIL) [Concomitant]
  12. ZYLORIC ^GLAXO WELLCOME^ (ALLOPURINOL) [Concomitant]
  13. DISOPYRAMIDE [Concomitant]
  14. TOFRANIL [Concomitant]
  15. LANSOPRAZOLE [Concomitant]
  16. VITAMEDIN CAPSULE (PYRIDOXINE HYDROCHLORIDE, CYANOCOBALAMIN, BENFOTIAM [Concomitant]
  17. FENTANYL [Concomitant]
  18. LEVOFLOXACIN [Concomitant]

REACTIONS (4)
  - HEPATIC ATROPHY [None]
  - HEPATIC FAILURE [None]
  - HEPATOCELLULAR DAMAGE [None]
  - ORAL INTAKE REDUCED [None]
